FAERS Safety Report 4636009-2 (Version None)
Quarter: 2005Q2

REPORT INFORMATION
  Report Type: 
  Country: None (occurrence: None)
  Receive Date: 20050331
  Receipt Date: 20040127
  Transmission Date: 20051028
  Serious: Yes (Hospitalization, Other)
  Sender: FDA-Public Use
  Company Number: 200410437BCC

PATIENT
  Age: 57 Year
  Sex: Female
  Weight: 54.8852 kg

DRUGS (4)
  1. ALEVE [Suspect]
     Indication: PAIN
     Dosage: QD, ORAL
     Route: 048
     Dates: start: 20031101
  2. LIPITOR [Concomitant]
  3. SYNTHROID [Concomitant]
  4. INDERAL [Concomitant]

REACTIONS (3)
  - DYSPNOEA [None]
  - HYPERSENSITIVITY [None]
  - URTICARIA [None]
